FAERS Safety Report 24043026 (Version 1)
Quarter: 2024Q3

REPORT INFORMATION
  Report Type: Spontaneous
  Country: CN (occurrence: CN)
  Receive Date: 20240702
  Receipt Date: 20240702
  Transmission Date: 20241017
  Serious: Yes (Hospitalization, Other)
  Sender: MERCK
  Company Number: CN-009507513-2407CHN000090

PATIENT
  Age: 64 Year
  Sex: Male
  Weight: 70 kg

DRUGS (6)
  1. KEYTRUDA [Suspect]
     Active Substance: PEMBROLIZUMAB
     Indication: Squamous cell carcinoma of lung
     Dosage: 200 MG, Q3W DAY 1
     Route: 041
     Dates: start: 20240420, end: 20240420
  2. KEYTRUDA [Suspect]
     Active Substance: PEMBROLIZUMAB
     Dosage: 200 MG, Q3W DAY 1
     Route: 041
     Dates: start: 20240513, end: 20240513
  3. PACLITAXEL [Suspect]
     Active Substance: PACLITAXEL
     Indication: Squamous cell carcinoma of lung
     Dosage: 200 MG, Q3W DAY 1, D8
     Route: 041
     Dates: start: 20240420, end: 20240420
  4. PACLITAXEL [Suspect]
     Active Substance: PACLITAXEL
     Dosage: 200 MG, Q3W DAY 1, D8
     Route: 041
     Dates: start: 20240513, end: 20240513
  5. CARBOPLATIN [Suspect]
     Active Substance: CARBOPLATIN
     Indication: Squamous cell carcinoma of lung
     Dosage: 550 MG, Q3W D1
     Route: 041
     Dates: start: 20240420, end: 20240420
  6. CARBOPLATIN [Suspect]
     Active Substance: CARBOPLATIN
     Dosage: 550 MG, Q3W D1
     Route: 041
     Dates: start: 20240513, end: 20240513

REACTIONS (29)
  - Pneumonia [Unknown]
  - Immune-mediated lung disease [Recovering/Resolving]
  - Pyrexia [Unknown]
  - Sputum retention [Unknown]
  - Productive cough [Unknown]
  - Sputum discoloured [Unknown]
  - Temperature intolerance [Unknown]
  - C-reactive protein increased [Unknown]
  - Interstitial lung abnormality [Unknown]
  - Arteriosclerosis coronary artery [Unknown]
  - Aortic arteriosclerosis [Unknown]
  - Resorption bone increased [Unknown]
  - Lymphadenopathy [Unknown]
  - Emphysema [Unknown]
  - Cystic lung disease [Unknown]
  - Hepatic calcification [Unknown]
  - Hepatic lesion [Unknown]
  - Plateletcrit increased [Unknown]
  - Red cell distribution width increased [Unknown]
  - Pulmonary mass [Unknown]
  - Pleural thickening [Unknown]
  - Asthma [Unknown]
  - Monocyte count increased [Unknown]
  - Haemoglobin decreased [Unknown]
  - Red blood cell count decreased [Unknown]
  - Haematocrit decreased [Unknown]
  - Lymphocyte percentage decreased [Unknown]
  - Muscle spasms [Unknown]
  - Inappropriate schedule of product administration [Unknown]

NARRATIVE: CASE EVENT DATE: 20240101
